FAERS Safety Report 22126491 (Version 1)
Quarter: 2023Q1

REPORT INFORMATION
  Report Type: Spontaneous
  Country: US (occurrence: None)
  Receive Date: 20230322
  Receipt Date: 20230322
  Transmission Date: 20230417
  Serious: No
  Sender: FDA-Public Use
  Company Number: None

PATIENT

DRUGS (1)
  1. DEXTROAMPHETAMINE [Suspect]
     Active Substance: DEXTROAMPHETAMINE

REACTIONS (5)
  - Drug ineffective [None]
  - Migraine [None]
  - Fatigue [None]
  - Drug screen negative [None]
  - Product formulation issue [None]

NARRATIVE: CASE EVENT DATE: 20230127
